FAERS Safety Report 20378815 (Version 1)
Quarter: 2022Q1

REPORT INFORMATION
  Report Type: Spontaneous
  Country: CN (occurrence: CN)
  Receive Date: 20220126
  Receipt Date: 20220126
  Transmission Date: 20220423
  Serious: Yes (Other)
  Sender: FDA-Public Use
  Company Number: CN-PFIZER INC-202200092733

PATIENT
  Age: 18 Year
  Sex: Male
  Weight: 58.3 kg

DRUGS (3)
  1. METHOTREXATE [Suspect]
     Active Substance: METHOTREXATE
     Indication: T-cell lymphoma
     Dosage: 1750 MG, 1X/DAY
     Route: 041
     Dates: start: 20220105, end: 20220105
  2. CYTARABINE [Suspect]
     Active Substance: CYTARABINE
     Indication: T-cell lymphoma
     Dosage: 5 G, 2X/DAY
     Route: 041
     Dates: start: 20220106, end: 20220108
  3. SODIUM CHLORIDE [Concomitant]
     Active Substance: SODIUM CHLORIDE
     Indication: T-cell lymphoma
     Dosage: 500 ML, 1X/DAY
     Route: 041
     Dates: start: 20220105, end: 20220108

REACTIONS (2)
  - Myelosuppression [Recovering/Resolving]
  - Haemorrhage subcutaneous [Recovering/Resolving]

NARRATIVE: CASE EVENT DATE: 20220111
